FAERS Safety Report 20338816 (Version 2)
Quarter: 2022Q1

REPORT INFORMATION
  Report Type: Spontaneous
  Country: JP (occurrence: JP)
  Receive Date: 20220116
  Receipt Date: 20220125
  Transmission Date: 20220424
  Serious: Yes (Disabling)
  Sender: FDA-Public Use
  Company Number: JP-NOVARTISPH-NVSJ2022JP000854

PATIENT
  Age: 86 Year
  Sex: Male

DRUGS (2)
  1. BEOVU [Suspect]
     Active Substance: BROLUCIZUMAB-DBLL
     Indication: Age-related macular degeneration
     Dosage: 6 MG
     Route: 031
     Dates: start: 20211221, end: 20211221
  2. BETAMETHASONE [Concomitant]
     Active Substance: BETAMETHASONE
     Indication: Product used for unknown indication
     Dosage: UNK, TID
     Route: 047

REACTIONS (3)
  - Retinal vascular occlusion [Unknown]
  - Blindness transient [Recovering/Resolving]
  - Vitreous opacities [Recovering/Resolving]

NARRATIVE: CASE EVENT DATE: 20220106
